FAERS Safety Report 24373357 (Version 2)
Quarter: 2025Q1

REPORT INFORMATION
  Report Type: Spontaneous
  Country: IN (occurrence: IN)
  Receive Date: 20240927
  Receipt Date: 20250106
  Transmission Date: 20250409
  Serious: Yes (Other)
  Sender: SANDOZ
  Company Number: IN-002147023-NVSC2024IN190191

PATIENT
  Age: 54 Year
  Sex: Male

DRUGS (3)
  1. MYFORTIC [Suspect]
     Active Substance: MYCOPHENOLATE SODIUM
     Indication: Renal transplant
     Dosage: 720 MG, QD (360 MG, BID)
     Route: 048
  2. TACROLIMUS [Suspect]
     Active Substance: TACROLIMUS
     Dosage: 1.5 MG, BID
     Route: 048
  3. TACROLIMUS [Suspect]
     Active Substance: TACROLIMUS
     Indication: Renal transplant
     Dosage: 4 MG, QD (2 MG, BID)
     Route: 048

REACTIONS (14)
  - Hypothyroidism [Unknown]
  - New onset diabetes after transplantation [Unknown]
  - Hyperglycaemia [Unknown]
  - Cardiac failure acute [Unknown]
  - Acute kidney injury [Unknown]
  - Hypertensive urgency [Unknown]
  - Left ventricular dysfunction [Unknown]
  - Chest discomfort [Unknown]
  - Dizziness [Unknown]
  - Hypertension [Unknown]
  - Dyspnoea [Unknown]
  - Coronary artery disease [Unknown]
  - Electrolyte imbalance [Unknown]
  - Product prescribing error [Unknown]

NARRATIVE: CASE EVENT DATE: 20240716
